FAERS Safety Report 13786668 (Version 1)
Quarter: 2017Q3

REPORT INFORMATION
  Report Type: Spontaneous
  Country: US (occurrence: US)
  Receive Date: 20170725
  Receipt Date: 20170725
  Transmission Date: 20171127
  Serious: Yes (Other)
  Sender: FDA-Public Use
  Company Number: None

PATIENT
  Age: 63 Year
  Sex: Female
  Weight: 81 kg

DRUGS (5)
  1. IBUPROFEN. [Concomitant]
     Active Substance: IBUPROFEN
  2. GABAPENTIN. [Suspect]
     Active Substance: GABAPENTIN
     Indication: NEURALGIA
     Dosage: ?          QUANTITY:180 TABLET(S); EVERY 6 HOURS ORAL?
     Route: 048
     Dates: start: 20141029, end: 20150529
  3. ALPRAZOLAM. [Concomitant]
     Active Substance: ALPRAZOLAM
  4. MELOXICAM. [Concomitant]
     Active Substance: MELOXICAM
  5. ACETAMINOPHEN/CODINE MEDICAL MARIJUANA [Concomitant]

REACTIONS (5)
  - Memory impairment [None]
  - Confusional state [None]
  - Speech disorder [None]
  - Paranoia [None]
  - Hallucination, visual [None]

NARRATIVE: CASE EVENT DATE: 20150330
